FAERS Safety Report 22159007 (Version 1)
Quarter: 2023Q1

REPORT INFORMATION
  Report Type: Other
  Country: FR (occurrence: FR)
  Receive Date: 20230331
  Receipt Date: 20230331
  Transmission Date: 20230418
  Serious: Yes (Hospitalization)
  Sender: FDA-Public Use
  Company Number: None

PATIENT

DRUGS (2)
  1. PAROXETINE [Suspect]
     Active Substance: PAROXETINE
     Indication: Poisoning deliberate
     Dosage: UNK, 1 TOTAL
     Route: 048
     Dates: start: 20230315, end: 20230315
  2. ACETAMINOPHEN [Suspect]
     Active Substance: ACETAMINOPHEN
     Indication: Poisoning deliberate
     Dosage: 16 DOSAGE FORM, 1 TOTAL
     Route: 048
     Dates: start: 20230315, end: 20230315

REACTIONS (4)
  - Prothrombin level decreased [Recovering/Resolving]
  - Hepatic cytolysis [Not Recovered/Not Resolved]
  - Overdose [Recovered/Resolved]
  - Anxiety [Not Recovered/Not Resolved]

NARRATIVE: CASE EVENT DATE: 20230316
